FAERS Safety Report 5113881-3 (Version None)
Quarter: 2006Q3

REPORT INFORMATION
  Report Type: 
  Country: None (occurrence: None)
  Receive Date: 20060921
  Receipt Date: 20060915
  Transmission Date: 20061208
  Serious: Yes (Death, Hospitalization)
  Sender: FDA-Public Use
  Company Number: 2006CT000725

PATIENT
  Age: 11 Year
  Sex: Female
  Weight: 28.123 kg

DRUGS (8)
  1. VENTAVIS [Suspect]
     Indication: PULMONARY HYPERTENSION
     Dosage: 5 UG; 6XD; INH
     Route: 055
     Dates: start: 20060622, end: 20060904
  2. FOLIC ACID [Concomitant]
  3. PREDNISONE [Concomitant]
  4. RANITIDINE [Concomitant]
  5. INSULIN ASPART [Concomitant]
  6. MULTIVITAMIN [Concomitant]
  7. INSULIN GLARGINE [Concomitant]
  8. AZATHIOPRINE [Concomitant]

REACTIONS (3)
  - CARDIAC ARREST [None]
  - CEREBRAL HAEMORRHAGE [None]
  - HEART TRANSPLANT [None]
